FAERS Safety Report 8344071-9 (Version None)
Quarter: 2012Q2

REPORT INFORMATION
  Report Type: 
  Country: None (occurrence: None)
  Receive Date: 20120508
  Receipt Date: 20110118
  Transmission Date: 20120825
  Serious: Yes (Hospitalization, Other)
  Sender: FDA-Public Use
  Company Number: US-TEVA-2010006607

PATIENT
  Age: 60 Year
  Sex: Male
  Weight: 63.969 kg

DRUGS (3)
  1. TREANDA [Suspect]
     Dosage: 174 MILLIGRAM;
     Route: 042
     Dates: start: 20101122, end: 20101123
  2. TREANDA [Suspect]
     Indication: CHRONIC LYMPHOCYTIC LEUKAEMIA
     Dosage: 119 MILLIGRAM;
     Route: 042
     Dates: start: 20101220, end: 20101220
  3. RITUXIMAB [Concomitant]
     Indication: CHRONIC LYMPHOCYTIC LEUKAEMIA
     Dosage: 650 MILLIGRAM;
     Dates: start: 20101220, end: 20101220

REACTIONS (3)
  - NEUTROPENIA [None]
  - PLATELET COUNT DECREASED [None]
  - HYPOTENSION [None]
